FAERS Safety Report 6435160-4 (Version None)
Quarter: 2009Q4

REPORT INFORMATION
  Report Type: 
  Country: None (occurrence: None)
  Receive Date: 20091110
  Receipt Date: 20090918
  Transmission Date: 20100525
  Serious: No
  Sender: FDA-Public Use
  Company Number: US-BRISTOL-MYERS SQUIBB COMPANY-14785539

PATIENT
  Sex: Female

DRUGS (5)
  1. ORENCIA [Suspect]
  2. IXEMPRA KIT [Suspect]
     Dosage: ANALOG 2 IXEMPRA DILUENT
  3. BMS663513 [Suspect]
  4. BMS844203 [Suspect]
  5. BMS753493 [Suspect]

REACTIONS (2)
  - ECCHYMOSIS [None]
  - HAEMORRHAGE [None]
